FAERS Safety Report 25227813 (Version 1)
Quarter: 2025Q2

REPORT INFORMATION
  Report Type: Spontaneous
  Country: US (occurrence: US)
  Receive Date: 20250423
  Receipt Date: 20250423
  Transmission Date: 20250717
  Serious: Yes (Other)
  Sender: GLAXOSMITHKLINE
  Company Number: US-GSK-US2025AMR048184

PATIENT

DRUGS (1)
  1. BENLYSTA [Suspect]
     Active Substance: BELIMUMAB
     Indication: Chronic cutaneous lupus erythematosus

REACTIONS (4)
  - Pneumonia streptococcal [Unknown]
  - Endocarditis [Unknown]
  - Embolic stroke [Unknown]
  - Product use in unapproved indication [Unknown]
